FAERS Safety Report 10396049 (Version 1)
Quarter: 2014Q1

REPORT INFORMATION
  Report Type: Spontaneous
  Country: US (occurrence: None)
  Receive Date: 20130724
  Receipt Date: 20130724
  Transmission Date: 20141002
  Serious: Yes (Hospitalization)
  Sender: FDA-Public Use
  Company Number: PHHY2011US13711

PATIENT
  Age: 66 Year
  Sex: Female

DRUGS (26)
  1. GLEEVEC (IMATINIB) UNKNOWN [Suspect]
     Indication: CHRONIC MYELOID LEUKAEMIA
     Route: 048
     Dates: start: 2006
  2. EXFORGE HCT (AMLODIPINE BESILATE, HYDROCHLOROTHIAZIDE, VALSARTAN) [Concomitant]
  3. PREDNISONE [Concomitant]
  4. SINGULAIR (MONTELUKAST) [Concomitant]
  5. PULMICORT (BUDESONIDE) [Concomitant]
  6. COMBIVENT (IPRATROPIUM BROMIDE, SALBUTAMOL SULFATE) SPRAY [Concomitant]
  7. ALBUTEROL SULFATE (SALBUTAMOL SULFATE) SPRAY [Concomitant]
  8. PAROXETINE HYDROCHLORIDE [Concomitant]
  9. VITAMIN B12 (CYANOCOBALAMIN) TABLET [Concomitant]
  10. VITAMIN D (ERGOCALCIFEROL) TABLET [Concomitant]
  11. FERROUS SULFATE TABLET [Concomitant]
  12. DIOVAN (VALSARTAN) [Concomitant]
  13. PRAVASTATIN SODIUM [Concomitant]
  14. OXAPROZIN [Concomitant]
  15. NUCYNTA (TAPENTADOL HYDROCHLORIDE) TABLET [Concomitant]
  16. NITRO-DUR (GLYCERYL TRINITRATE) PATCH [Concomitant]
  17. NAPROXEN [Concomitant]
  18. METFORMIN HYDROCHLORIDE [Concomitant]
  19. METHOCARBAMOL TABLET [Concomitant]
  20. LIDODERM (LIDOCAINE) [Concomitant]
  21. LEVOTHYROXINE [Concomitant]
  22. FUROSEMIDE [Concomitant]
  23. CARTIA XT (DILTIAZEM) [Concomitant]
  24. ALPRAZOLAM [Concomitant]
  25. TYLENOL (PARACETAMOL) TABLET [Concomitant]
  26. ANTIBIOTICS (NO INGREDIENTS/SUBSTANCES) [Concomitant]

REACTIONS (9)
  - Osteomyelitis [None]
  - Arthropathy [None]
  - Cardiac disorder [None]
  - Muscle spasms [None]
  - Dyspnoea [None]
  - Myalgia [None]
  - Bone pain [None]
  - Weight increased [None]
  - Alopecia [None]
